FAERS Safety Report 7176333-5 (Version None)
Quarter: 2010Q4

REPORT INFORMATION
  Report Type: 
  Country: None (occurrence: None)
  Receive Date: 20101220
  Receipt Date: 20101216
  Transmission Date: 20110411
  Serious: No
  Sender: FDA-Public Use
  Company Number: US-PFIZER INC-2010135561

PATIENT
  Sex: Female

DRUGS (4)
  1. PROCARDIA [Suspect]
     Indication: HYPERTENSION
     Dosage: 30 MG, DAILY
     Route: 048
     Dates: start: 20101021
  2. LISINOPRIL [Suspect]
     Dosage: UNK
  3. CALCIUM [Concomitant]
     Dosage: 1000 MG, UNK
  4. VITAMIN D [Concomitant]
     Dosage: 1000 MG, UNK

REACTIONS (3)
  - GASTROINTESTINAL DISORDER [None]
  - PAIN [None]
  - POLLAKIURIA [None]
